FAERS Safety Report 4647089-2 (Version None)
Quarter: 2005Q2

REPORT INFORMATION
  Report Type: 
  Country: None (occurrence: None)
  Receive Date: 20050331
  Receipt Date: 20050126
  Transmission Date: 20051028
  Serious: No
  Sender: FDA-Public Use
  Company Number: 05P-163-0288222-00

PATIENT
  Age: 56 Year
  Sex: Female
  Weight: 83.0083 kg

DRUGS (12)
  1. HUMIRA [Suspect]
     Indication: RHEUMATOID ARTHRITIS
     Dosage: 40 MG, 1 IN 2 WK, SUBCUTANEOUS
     Route: 058
     Dates: start: 20041001
  2. CELECOXIB [Concomitant]
  3. ASPIRIN [Concomitant]
  4. ESTROPIPATE [Concomitant]
  5. FUROSEMIDE [Concomitant]
  6. LISINOPRIL [Concomitant]
  7. LEVOTHYROXINE SODIUM [Concomitant]
  8. FOLIC ACID [Concomitant]
  9. PREDNISONE TAB [Concomitant]
  10. POTASSIUM CHLORIDE [Concomitant]
  11. HUMILIN R INSULIN [Concomitant]
  12. INSULIN GLARGINE [Concomitant]

REACTIONS (6)
  - DRUG EFFECT DECREASED [None]
  - EYELID OEDEMA [None]
  - NAUSEA [None]
  - NODULE [None]
  - SWELLING FACE [None]
  - WEIGHT INCREASED [None]
